FAERS Safety Report 21392966 (Version 1)
Quarter: 2022Q3

REPORT INFORMATION
  Report Type: Spontaneous
  Country: FR (occurrence: FR)
  Receive Date: 20220929
  Receipt Date: 20220929
  Transmission Date: 20221026
  Serious: Yes (Other)
  Sender: FDA-Public Use
  Company Number: FR-BAYER-2022A135652

PATIENT
  Age: 66 Year
  Sex: Female

DRUGS (5)
  1. VITRAKVI [Suspect]
     Active Substance: LAROTRECTINIB
     Indication: Lung adenocarcinoma
     Dosage: 100 MG, BID
     Dates: start: 20220304, end: 20220410
  2. VITRAKVI [Suspect]
     Active Substance: LAROTRECTINIB
     Indication: Lung adenocarcinoma
     Dosage: 100 MG, BID
     Dates: start: 20220427, end: 20220427
  3. VITRAKVI [Suspect]
     Active Substance: LAROTRECTINIB
     Indication: Lung adenocarcinoma
     Dosage: 25 MG, ONCE (IN THE MORNING)
     Dates: start: 20220920, end: 20220920
  4. VITRAKVI [Suspect]
     Active Substance: LAROTRECTINIB
     Indication: Lung adenocarcinoma
     Dosage: 25 MG, BID ( IN THE MORNING AND IN THE EVENING )
     Dates: start: 20220921
  5. LEVOCETIRIZINE [Concomitant]
     Active Substance: LEVOCETIRIZINE

REACTIONS (2)
  - Lung adenocarcinoma [None]
  - Transaminases increased [None]

NARRATIVE: CASE EVENT DATE: 20220913
